FAERS Safety Report 7863114-X (Version None)
Quarter: 2011Q4

REPORT INFORMATION
  Report Type: 
  Country: None (occurrence: None)
  Receive Date: 20111027
  Receipt Date: 20101129
  Transmission Date: 20120403
  Serious: No
  Sender: FDA-Public Use
  Company Number: US-AMGEN-KDL368392

PATIENT
  Age: 24 Year
  Sex: Female

DRUGS (2)
  1. ENBREL [Suspect]
     Indication: PSORIASIS
     Dosage: 50 MG, 2 TIMES/WK
     Route: 058
     Dates: start: 20080601
  2. ENBREL [Suspect]
     Dosage: 50 MG, QWK

REACTIONS (11)
  - BREAST DISCHARGE [None]
  - INJECTION SITE SWELLING [None]
  - ANIMAL SCRATCH [None]
  - LYMPHADENOPATHY [None]
  - PAPULE [None]
  - INJECTION SITE REACTION [None]
  - INJECTION SITE WARMTH [None]
  - EYE IRRITATION [None]
  - INJECTION SITE ERYTHEMA [None]
  - FEELING HOT [None]
  - STAPHYLOCOCCAL INFECTION [None]
